FAERS Safety Report 18269271 (Version 1)
Quarter: 2020Q3

REPORT INFORMATION
  Report Type: Spontaneous
  Country: CO (occurrence: CO)
  Receive Date: 20200915
  Receipt Date: 20200915
  Transmission Date: 20201103
  Serious: Yes (Hospitalization, Other)
  Sender: FDA-Public Use
  Company Number: CO-JAZZ-2020-CO-005602

PATIENT
  Age: 11 Year
  Sex: Female

DRUGS (3)
  1. DAUNORUBICIN [Concomitant]
     Active Substance: DAUNORUBICIN
     Indication: PRODUCT USED FOR UNKNOWN INDICATION
     Dosage: 37 MILLIGRAM, DAYS 1?7?14?21
     Route: 042
     Dates: start: 20200414
  2. KIDROLASE [Suspect]
     Active Substance: ASPARAGINASE
     Indication: ACUTE LYMPHOCYTIC LEUKAEMIA
     Dosage: 6000 INTERNATIONAL UNIT, CYCLIC
     Route: 042
     Dates: start: 20200417, end: 20200417
  3. VINCRISTINE [Concomitant]
     Active Substance: VINCRISTINE
     Indication: PRODUCT USED FOR UNKNOWN INDICATION
     Dosage: 1.8 MILLIGRAM, DAYS 1?7?14?21
     Route: 042
     Dates: start: 20200414

REACTIONS (2)
  - Rash [Recovered/Resolved]
  - Hyperhidrosis [Recovered/Resolved]

NARRATIVE: CASE EVENT DATE: 20200417
